FAERS Safety Report 6057581-4 (Version None)
Quarter: 2009Q1

REPORT INFORMATION
  Report Type: 
  Country: None (occurrence: None)
  Receive Date: 20090126
  Receipt Date: 20090114
  Transmission Date: 20090719
  Serious: Yes (Other)
  Sender: FDA-Public Use
  Company Number: 2008AP003231

PATIENT
  Age: 61 Year
  Sex: Male

DRUGS (4)
  1. CARVEDILOL [Suspect]
     Indication: HYPERTENSION
  2. THIAZIDES [Concomitant]
  3. ANGIOTENSIN II [Concomitant]
  4. ANTAGONISTS [Concomitant]

REACTIONS (3)
  - MALE SEXUAL DYSFUNCTION [None]
  - PERIPHERAL COLDNESS [None]
  - PEYRONIE'S DISEASE [None]
